FAERS Safety Report 5159488-3 (Version None)
Quarter: 2006Q4

REPORT INFORMATION
  Report Type: 
  Country: None (occurrence: None)
  Receive Date: 20061129
  Receipt Date: 20061122
  Transmission Date: 20070319
  Serious: Yes (Life-Threatening)
  Sender: FDA-Public Use
  Company Number: US-JNJFOC-20060904520

PATIENT
  Sex: Male
  Weight: 82 kg

DRUGS (12)
  1. REOPRO [Suspect]
     Indication: MYOCARDIAL INFARCTION
  2. LOSEC [Concomitant]
     Indication: GASTROOESOPHAGEAL REFLUX DISEASE
  3. NITROGLYCERIN [Concomitant]
     Indication: CHEST PAIN
  4. MORPHINE SUL INJ [Concomitant]
     Indication: CHEST PAIN
  5. METOCLOPRAMIDE [Concomitant]
     Indication: NAUSEA
  6. VALIUM [Concomitant]
     Indication: MYOCARDIAL INFARCTION
  7. HEPARIN [Concomitant]
     Indication: ACUTE CORONARY SYNDROME
  8. GLYCERYL TRINITRATE [Concomitant]
     Indication: VASODILATION PROCEDURE
  9. METOPROLOL [Concomitant]
     Indication: MYOCARDIAL INFARCTION
  10. ATROPINE [Concomitant]
     Indication: BRADYCARDIA
  11. ACETAMINOPHEN [Concomitant]
     Indication: PERICARDITIS
  12. DOBUTAMINE HCL [Concomitant]
     Indication: HYPOTENSION

REACTIONS (1)
  - PERICARDIAL HAEMORRHAGE [None]
